FAERS Safety Report 6636294-1 (Version None)
Quarter: 2010Q1

REPORT INFORMATION
  Report Type: 
  Country: None (occurrence: None)
  Receive Date: 20100226
  Receipt Date: 20100202
  Transmission Date: 20100710
  Serious: No
  Sender: FDA-Public Use
  Company Number: 2010-00224

PATIENT
  Age: 38 Year
  Sex: Female
  Weight: 53.5244 kg

DRUGS (3)
  1. ZICAM COLD REMEDY RAPIDMELTS [Suspect]
     Dosage: Q 3 HRS- 1 DAY/5 DOSES
     Dates: start: 20100201, end: 20100202
  2. ACYCLOVIR [Concomitant]
  3. MULTI-VITAMIN [Concomitant]

REACTIONS (2)
  - AGEUSIA [None]
  - ANOSMIA [None]
